FAERS Safety Report 8416023-1 (Version None)
Quarter: 2012Q2

REPORT INFORMATION
  Report Type: 
  Country: None (occurrence: None)
  Receive Date: 20120606
  Receipt Date: 20120602
  Transmission Date: 20120825
  Serious: Yes (Hospitalization)
  Sender: FDA-Public Use
  Company Number: US-ROCHE-1053809

PATIENT
  Sex: Male
  Weight: 74.456 kg

DRUGS (4)
  1. HYDROCORTISONE [Concomitant]
     Route: 048
  2. ANDROGEL [Concomitant]
     Dosage: 1 PACKAGE DAILY.
     Route: 065
  3. LEVOTHYROXINE SODIUM [Concomitant]
     Route: 065
  4. TAMIFLU [Suspect]
     Indication: PYREXIA
     Route: 048
     Dates: start: 20120312, end: 20120312

REACTIONS (1)
  - CONFUSIONAL STATE [None]
